FAERS Safety Report 6059210-2 (Version None)
Quarter: 2009Q1

REPORT INFORMATION
  Report Type: 
  Country: None (occurrence: None)
  Receive Date: 20090128
  Receipt Date: 20090128
  Transmission Date: 20090719
  Serious: Yes (Hospitalization)
  Sender: FDA-Public Use
  Company Number: None

PATIENT
  Sex: Female
  Weight: 63.9 kg

DRUGS (3)
  1. FLUDARABINE [Suspect]
     Indication: STEM CELL TRANSPLANT
     Dosage: 47.5 MG DAILY IV DRIP
     Route: 041
     Dates: start: 20081127, end: 20081201
  2. CAMPATH [Suspect]
     Indication: STEM CELL TRANSPLANT
     Dosage: 20 MG DAILY IV DRIP
     Route: 041
     Dates: start: 20081127, end: 20081201
  3. BUSULFAN [Suspect]
     Dosage: 278MG DAILY IV DRIP
     Route: 041
     Dates: start: 20081128, end: 20081201

REACTIONS (4)
  - CONFUSIONAL STATE [None]
  - DISORIENTATION [None]
  - MENTAL STATUS CHANGES [None]
  - NUCLEAR MAGNETIC RESONANCE IMAGING BRAIN ABNORMAL [None]
